FAERS Safety Report 7506368-1 (Version None)
Quarter: 2011Q2

REPORT INFORMATION
  Report Type: 
  Country: None (occurrence: None)
  Receive Date: 20110526
  Receipt Date: 20100524
  Transmission Date: 20111010
  Serious: No
  Sender: FDA-Public Use
  Company Number: US-ABBOTT-10P-163-0647922-00

PATIENT
  Age: 71 Year
  Sex: Male

DRUGS (3)
  1. MANY OTHER UNKNOWN MEDICATIONS [Concomitant]
     Indication: PRODUCT USED FOR UNKNOWN INDICATION
  2. ZEMPLAR [Suspect]
     Indication: RENAL FAILURE CHRONIC
     Dosage: USED SAMPLES FROM MD OFFICE.
     Route: 048
  3. ZEMPLAR [Suspect]
     Indication: BLOOD PARATHYROID HORMONE INCREASED

REACTIONS (1)
  - MUSCLE SPASMS [None]
